FAERS Safety Report 7452881-5 (Version None)
Quarter: 2011Q2

REPORT INFORMATION
  Report Type: 
  Country: None (occurrence: None)
  Receive Date: 20110502
  Receipt Date: 20101014
  Transmission Date: 20111010
  Serious: No
  Sender: FDA-Public Use
  Company Number: US-ASTRAZENECA-2010SE48608

PATIENT
  Sex: Female

DRUGS (2)
  1. NEXIUM [Suspect]
     Indication: GASTROOESOPHAGEAL REFLUX DISEASE
     Dosage: DAILY, AFTER MEAL
     Route: 048
  2. SYNTHROID [Concomitant]

REACTIONS (4)
  - NAUSEA [None]
  - ERUCTATION [None]
  - MALAISE [None]
  - INAPPROPRIATE SCHEDULE OF DRUG ADMINISTRATION [None]
